FAERS Safety Report 4884786-8 (Version None)
Quarter: 2006Q1

REPORT INFORMATION
  Report Type: 
  Country: None (occurrence: None)
  Receive Date: 20060117
  Receipt Date: 20060109
  Transmission Date: 20060701
  Serious: Yes (Hospitalization)
  Sender: FDA-Public Use
  Company Number: MK200601-0101-1

PATIENT
  Age: 16 Year
  Sex: Male

DRUGS (3)
  1. METHYLPHENIDATE HCL [Suspect]
     Indication: ATTENTION DEFICIT/HYPERACTIVITY DISORDER
     Dosage: 30 MG, BID
  2. ERYTHROMYCIN [Suspect]
     Indication: ACNE
     Dosage: 999 MG ONCE A DAY
  3. BUPROPION HCL [Suspect]
     Indication: DEPRESSION
     Dosage: 100 MG TWICE A DAY

REACTIONS (1)
  - MYOCARDIAL INFARCTION [None]
